FAERS Safety Report 9781189 (Version 1)
Quarter: 2013Q4

REPORT INFORMATION
  Report Type: Spontaneous
  Country: GR (occurrence: None)
  Receive Date: 20131220
  Receipt Date: 20131220
  Transmission Date: 20140711
  Serious: Yes (Other)
  Sender: FDA-Public Use
  Company Number: 2013P1021946

PATIENT
  Age: 62 Year
  Sex: Male

DRUGS (2)
  1. AMIODARONE [Suspect]
     Indication: ATRIAL FIBRILLATION
     Route: 042
  2. UNSPECIFIED LOW MOLECULAR WEIGHT HEPARIN [Concomitant]

REACTIONS (2)
  - Hypotension [None]
  - Back pain [None]
